FAERS Safety Report 25595689 (Version 1)
Quarter: 2025Q3

REPORT INFORMATION
  Report Type: Spontaneous
  Country: US (occurrence: US)
  Receive Date: 20250723
  Receipt Date: 20250723
  Transmission Date: 20251020
  Serious: No
  Sender: CSL Plasma
  Company Number: US-CSLP-11608665902-V00CRGD8-62

PATIENT
  Age: 42 Year
  Sex: Male

DRUGS (2)
  1. ANTICOAGULANT SODIUM CITRATE [Suspect]
     Active Substance: SODIUM CITRATE
     Indication: Anticoagulant therapy
     Route: 050
     Dates: start: 20250703, end: 20250703
  2. Albuterol (Inhaler) [Concomitant]
     Indication: Bronchitis

REACTIONS (4)
  - Presyncope [Recovered/Resolved]
  - Vomiting [Recovered/Resolved]
  - Dysgeusia [Recovered/Resolved]
  - Nausea [Recovered/Resolved]

NARRATIVE: CASE EVENT DATE: 20250703
